FAERS Safety Report 20001528 (Version 1)
Quarter: 2021Q4

REPORT INFORMATION
  Report Type: Spontaneous
  Country: US (occurrence: US)
  Receive Date: 20211027
  Receipt Date: 20211027
  Transmission Date: 20220303
  Serious: Yes (Other)
  Sender: FDA-Public Use
  Company Number: US-CELGENE-USA-20211006675

PATIENT
  Age: 63 Year
  Sex: Male
  Weight: 88.53 kg

DRUGS (3)
  1. REVLIMID [Suspect]
     Active Substance: LENALIDOMIDE
     Indication: Plasma cell myeloma
     Dosage: 25 MILLIGRAM
     Route: 048
     Dates: start: 202105
  2. GABAPENTIN [Concomitant]
     Active Substance: GABAPENTIN
     Indication: Back pain
     Route: 048
  3. METAXALONE [Concomitant]
     Active Substance: METAXALONE
     Indication: Back pain
     Route: 048

REACTIONS (1)
  - Benign neoplasm of spinal cord [Unknown]

NARRATIVE: CASE EVENT DATE: 20210915
